FAERS Safety Report 4553021-2 (Version None)
Quarter: 2005Q2

REPORT INFORMATION
  Report Type: 
  Country: None (occurrence: None)
  Receive Date: 20050114
  Receipt Date: 20041108
  Transmission Date: 20051028
  Serious: Yes (Hospitalization)
  Sender: FDA-Public Use
  Company Number: DE-BRISTOL-MYERS SQUIBB COMPANY-12759262

PATIENT
  Age: 53 Year
  Sex: Male
  Weight: 92 kg

DRUGS (5)
  1. ABILIFY [Suspect]
     Indication: SCHIZOPHRENIA, PARANOID TYPE
     Dosage: INCREASED TO 15 MG/DAY ON 02-OCT-2004.  DISCONTINUED ON 02-OCT-2004.
     Route: 048
     Dates: start: 20040804, end: 20041002
  2. RISPERDAL [Interacting]
     Dosage: 3 MG/DAY FROM 13-AUG-04 TO 01-OCT-04; 5 MG/DAY SINCE 02-OCT-04.
     Route: 048
     Dates: start: 20040701, end: 20041001
  3. EUNERPAN [Suspect]
     Route: 048
     Dates: start: 20040701
  4. ENAHEXAL [Concomitant]
     Route: 048
     Dates: start: 20040601
  5. HYDROCHLOROTHIAZIDE [Concomitant]
     Route: 048
     Dates: start: 20040601

REACTIONS (10)
  - ANXIETY [None]
  - CONFUSIONAL STATE [None]
  - DEPRESSED MOOD [None]
  - DISORIENTATION [None]
  - DISTURBANCE IN ATTENTION [None]
  - DRUG INTERACTION [None]
  - MIDDLE INSOMNIA [None]
  - RESTLESSNESS [None]
  - SOCIAL AVOIDANT BEHAVIOUR [None]
  - THINKING ABNORMAL [None]
